FAERS Safety Report 9749187 (Version 1)
Quarter: 2013Q4

REPORT INFORMATION
  Report Type: Spontaneous
  Country: US (occurrence: US)
  Receive Date: 20131212
  Receipt Date: 20131212
  Transmission Date: 20140711
  Serious: No
  Sender: FDA-Public Use
  Company Number: US-INCYTE CORPORATION-2013IN002475

PATIENT
  Age: 64 Year
  Sex: Female

DRUGS (8)
  1. JAKAFI [Suspect]
     Indication: MYELOFIBROSIS
     Dosage: 5 MG, BID
     Dates: start: 201303, end: 2013
  2. LOSARTAN [Concomitant]
  3. ALLOPURINOL [Concomitant]
  4. METOPROLOL [Concomitant]
  5. DIAZEPAM [Concomitant]
  6. LYRICA [Concomitant]
  7. TRAMADOL [Concomitant]
  8. NEURONTIN [Concomitant]

REACTIONS (2)
  - Nausea [Not Recovered/Not Resolved]
  - Vomiting [Not Recovered/Not Resolved]
